FAERS Safety Report 13425328 (Version 1)
Quarter: 2017Q2

REPORT INFORMATION
  Report Type: Report from Study
  Country: CA (occurrence: CA)
  Receive Date: 20170411
  Receipt Date: 20170411
  Transmission Date: 20170830
  Serious: Yes (Life-Threatening)
  Sender: FDA-Public Use
  Company Number: CA-HLSUS-2017-CA-000343

PATIENT
  Age: 48 Year
  Sex: Male

DRUGS (4)
  1. CLOZAPINE. [Suspect]
     Active Substance: CLOZAPINE
     Indication: SCHIZOPHRENIA
  2. COGENTIN [Concomitant]
     Active Substance: BENZTROPINE MESYLATE
  3. PREVACID [Concomitant]
     Active Substance: LANSOPRAZOLE
  4. HALOPERIDOL DECANOATE. [Concomitant]
     Active Substance: HALOPERIDOL DECANOATE

REACTIONS (4)
  - White blood cell count decreased [Unknown]
  - Neutropenia [Unknown]
  - Neutrophil count decreased [Unknown]
  - Viral infection [Unknown]
